FAERS Safety Report 17349242 (Version 1)
Quarter: 2020Q1

REPORT INFORMATION
  Report Type: Spontaneous
  Country: US (occurrence: US)
  Receive Date: 20200129
  Receipt Date: 20200129
  Transmission Date: 20200409
  Serious: Yes (Hospitalization, Disabling, Other)
  Sender: FDA-Public Use
  Company Number: None

PATIENT
  Age: 29 Year
  Sex: Male
  Weight: 94.5 kg

DRUGS (20)
  1. SELENIUM [Concomitant]
     Active Substance: SELENIUM
  2. ZINC. [Concomitant]
     Active Substance: ZINC
  3. POTASSIUM [Concomitant]
     Active Substance: POTASSIUM
  4. PANTETHINE B5 SEA-IODINE [Concomitant]
  5. GREEN TEA EXTRACT (DIETARY SUPPLEMENT) [Concomitant]
     Active Substance: DIETARY SUPPLEMENT
  6. TRACE MINERAL DROPS [Concomitant]
  7. LEVOFLOXACIN. [Suspect]
     Active Substance: LEVOFLOXACIN
     Indication: PROSTATITIS
  8. DIAZEPAM. [Concomitant]
     Active Substance: DIAZEPAM
  9. PICOLINATE [Concomitant]
  10. MAGNESIUM [Concomitant]
     Active Substance: MAGNESIUM
  11. B12 (METHYLCOBALAMIN) [Concomitant]
  12. L-METHYLFOLATE [Concomitant]
     Active Substance: LEVOMEFOLIC ACID
  13. COQ10 [Concomitant]
     Active Substance: UBIDECARENONE
  14. MANGANESE [Concomitant]
     Active Substance: MANGANESE CHLORIDE
  15. BORON [Concomitant]
     Active Substance: BORON
  16. CHLOROPHYLLIN [Concomitant]
     Active Substance: SODIUM COPPER CHLOROPHYLLIN
  17. CIPROFLOXACIN. [Suspect]
     Active Substance: CIPROFLOXACIN
     Indication: PROSTATITIS
     Route: 048
  18. PERCOCET [Concomitant]
     Active Substance: ACETAMINOPHEN\OXYCODONE HYDROCHLORIDE
  19. CARNISONE [Concomitant]
  20. MELATONIN [Concomitant]
     Active Substance: MELATONIN

REACTIONS (7)
  - Procedural failure [None]
  - Therapy partial responder [None]
  - Nerve injury [None]
  - Stem cell therapy [None]
  - Depression [None]
  - Tendon rupture [None]
  - Anxiety [None]

NARRATIVE: CASE EVENT DATE: 20181010
